FAERS Safety Report 11744556 (Version 1)
Quarter: 2015Q4

REPORT INFORMATION
  Report Type: Spontaneous
  Country: US (occurrence: US)
  Receive Date: 20151116
  Receipt Date: 20151116
  Transmission Date: 20160304
  Serious: Yes (Other)
  Sender: FDA-Public Use
  Company Number: US-PFIZER INC-2015378969

PATIENT
  Age: 51 Year
  Sex: Male
  Weight: 93 kg

DRUGS (3)
  1. ADVIL [Suspect]
     Active Substance: IBUPROFEN
     Indication: PAIN
     Dosage: 3 DF, UNK (MAY BE ONCE A WEEK)
  2. ADVIL [Suspect]
     Active Substance: IBUPROFEN
     Indication: HEADACHE
  3. GLUTEN [Suspect]
     Active Substance: WHEAT GLUTEN

REACTIONS (3)
  - Product label issue [Unknown]
  - Reaction to drug excipients [Unknown]
  - Coeliac disease [Not Recovered/Not Resolved]
